FAERS Safety Report 4307431-9 (Version None)
Quarter: 2004Q1

REPORT INFORMATION
  Report Type: 
  Country: None (occurrence: None)
  Receive Date: 20040226
  Receipt Date: 20040218
  Transmission Date: 20041129
  Serious: Yes (Other)
  Sender: FDA-Public Use
  Company Number: 2004010468

PATIENT
  Sex: 0

DRUGS (2)
  1. VFEND [Suspect]
     Indication: ILL-DEFINED DISORDER
  2. LEVETIRACETAM [Suspect]
     Indication: EPILEPSY

REACTIONS (2)
  - DRUG INTERACTION [None]
  - EPILEPSY [None]
